FAERS Safety Report 14656361 (Version 2)
Quarter: 2018Q2

REPORT INFORMATION
  Report Type: Report from Study
  Country: FR (occurrence: FR)
  Receive Date: 20180319
  Receipt Date: 20180424
  Transmission Date: 20180711
  Serious: Yes (Hospitalization, Other)
  Sender: FDA-Public Use
  Company Number: FR-PFIZER INC-2018106233

PATIENT
  Age: 8 Year
  Sex: Male

DRUGS (7)
  1. DEXAMETHASONE. [Suspect]
     Active Substance: DEXAMETHASONE
     Indication: ACUTE LYMPHOCYTIC LEUKAEMIA
     Dosage: 10 MG, 1X/DAY
     Route: 048
     Dates: start: 20180119, end: 20180206
  2. CYTARABINE. [Suspect]
     Active Substance: CYTARABINE
     Indication: ACUTE LYMPHOCYTIC LEUKAEMIA
     Dosage: 30 MG, 1X/DAY
     Route: 037
     Dates: start: 20180122
  3. DOXORUBICIN HCL [Suspect]
     Active Substance: DOXORUBICIN HYDROCHLORIDE
     Indication: ACUTE LYMPHOCYTIC LEUKAEMIA
     Dosage: 24 MG, 1X/DAY
     Route: 042
     Dates: start: 20180119, end: 20180126
  4. PEGASPARGASE [Suspect]
     Active Substance: PEGASPARGASE
     Indication: ACUTE LYMPHOCYTIC LEUKAEMIA
     Dosage: 2550 IU, 1X/DAY
     Route: 042
     Dates: start: 20180122
  5. METHOTREXATE. [Suspect]
     Active Substance: METHOTREXATE
     Indication: ACUTE LYMPHOCYTIC LEUKAEMIA
     Dosage: 12 MG, 1X/DAY
     Route: 037
     Dates: start: 20180122
  6. VINCRISTINE SULFATE. [Suspect]
     Active Substance: VINCRISTINE SULFATE
     Indication: ACUTE LYMPHOCYTIC LEUKAEMIA
     Dosage: 1.5 MG, 1X/DAY
     Route: 042
     Dates: start: 20180119, end: 20180202
  7. HYDROCORTISONE. [Suspect]
     Active Substance: HYDROCORTISONE
     Indication: ACUTE LYMPHOCYTIC LEUKAEMIA
     Dosage: 15 MG, 1X/DAY
     Route: 037

REACTIONS (1)
  - Pancreatitis [Recovered/Resolved with Sequelae]

NARRATIVE: CASE EVENT DATE: 20180206
